FAERS Safety Report 18375947 (Version 1)
Quarter: 2020Q4

REPORT INFORMATION
  Report Type: Spontaneous
  Country: US (occurrence: US)
  Receive Date: 20201010
  Receipt Date: 20201010
  Transmission Date: 20210114
  Serious: Yes (Hospitalization)
  Sender: FDA-Public Use
  Company Number: None

PATIENT
  Age: 66 Year
  Sex: Male
  Weight: 86.85 kg

DRUGS (9)
  1. ATORVASTIN [Concomitant]
     Active Substance: ATORVASTATIN
  2. COENZYME Q10 [Concomitant]
     Active Substance: DIETARY SUPPLEMENT\UBIDECARENONE
  3. BOSWELLIA [Concomitant]
     Active Substance: DIETARY SUPPLEMENT\HERBALS
  4. ASPIRIN. [Concomitant]
     Active Substance: ASPIRIN
  5. OSTEOBIFLEX [Concomitant]
  6. METAPROLOL [Concomitant]
     Active Substance: METOPROLOL
  7. FENOFIBRATE. [Concomitant]
     Active Substance: FENOFIBRATE
  8. VASCEPA [Suspect]
     Active Substance: ICOSAPENT ETHYL
     Indication: HYPERLIPIDAEMIA
     Dosage: ?          QUANTITY:2 CAPSULE(S);?
     Route: 048
     Dates: start: 20200923, end: 20201007
  9. LISINOPRIL. [Concomitant]
     Active Substance: LISINOPRIL

REACTIONS (1)
  - Atrial fibrillation [None]

NARRATIVE: CASE EVENT DATE: 20201009
